FAERS Safety Report 7102095-3 (Version None)
Quarter: 2010Q4

REPORT INFORMATION
  Report Type: 
  Country: None (occurrence: None)
  Receive Date: 20101115
  Receipt Date: 20101104
  Transmission Date: 20110411
  Serious: Yes (Hospitalization)
  Sender: FDA-Public Use
  Company Number: US-BIOGENIDEC-2010BI037314

PATIENT
  Age: 68 Year
  Sex: Female
  Weight: 72 kg

DRUGS (2)
  1. TYSABRI [Suspect]
     Indication: MULTIPLE SCLEROSIS
     Route: 042
     Dates: start: 20070501, end: 20090101
  2. TYSABRI [Suspect]
     Route: 042
     Dates: start: 20090101

REACTIONS (3)
  - FALL [None]
  - HIP FRACTURE [None]
  - MULTIPLE SCLEROSIS RELAPSE [None]
